FAERS Safety Report 10620160 (Version 3)
Quarter: 2015Q1

REPORT INFORMATION
  Report Type: Report from Study
  Country: ES (occurrence: ES)
  Receive Date: 20141202
  Receipt Date: 20150218
  Transmission Date: 20150720
  Serious: Yes (Hospitalization)
  Sender: FDA-Public Use
  Company Number: ES-CELGENE-144-AB007-14030298

PATIENT
  Age: 13 Year
  Sex: Female
  Weight: 49 kg

DRUGS (17)
  1. ABRAXANE [Suspect]
     Active Substance: PACLITAXEL
     Dosage: 10 MILLIGRAM
     Route: 041
     Dates: end: 20140312
  2. LORATADINE. [Concomitant]
     Active Substance: LORATADINE
     Indication: PRURITUS
     Route: 048
     Dates: start: 20140212, end: 20140212
  3. OMEPRAZOLE. [Concomitant]
     Active Substance: OMEPRAZOLE
     Route: 041
     Dates: start: 20140303, end: 20140303
  4. HYDROXICINE [Concomitant]
     Dosage: 150 MILLIGRAM
     Route: 048
     Dates: start: 20140303, end: 20140306
  5. OMEPRAZOLE. [Concomitant]
     Active Substance: OMEPRAZOLE
     Route: 041
     Dates: start: 20140304
  6. IBUPROFEN. [Concomitant]
     Active Substance: IBUPROFEN
     Indication: BACK PAIN
     Route: 048
     Dates: start: 20140211, end: 20140211
  7. TRIMETOPRIM/SULFAMETOXAZOLE [Concomitant]
     Indication: PROPHYLAXIS
     Dosage: 160/180
     Route: 048
     Dates: start: 20121004, end: 20140303
  8. TRIMETOPRIM/SULFAMETOXAZOLE [Concomitant]
     Dosage: 160/180
     Route: 048
     Dates: start: 20140316
  9. HYDROXICINE [Concomitant]
     Indication: PRURITUS
     Dosage: ML
     Route: 048
     Dates: start: 20140211, end: 20140212
  10. DEXCLORFENIRAMINE [Concomitant]
     Indication: PRURITUS
     Dosage: 150 MILLIGRAM
     Route: 041
     Dates: start: 20140211, end: 20140225
  11. DEXCLORFENIRAMINE [Concomitant]
     Route: 041
     Dates: start: 20140303, end: 20140314
  12. HYDROXICINE [Concomitant]
     Dosage: ML
     Route: 048
     Dates: start: 20140218, end: 20140218
  13. ONDANSETRON [Concomitant]
     Active Substance: ONDANSETRON
     Indication: PROPHYLAXIS OF NAUSEA AND VOMITING
     Route: 041
     Dates: start: 20140303, end: 20140304
  14. ONDANSETRON [Concomitant]
     Active Substance: ONDANSETRON
     Route: 041
     Dates: start: 20140305, end: 20140312
  15. ABRAXANE [Suspect]
     Active Substance: PACLITAXEL
     Indication: ALVEOLAR RHABDOMYOSARCOMA
     Route: 041
     Dates: start: 20140212, end: 20140226
  16. OMEPRAZOLE. [Concomitant]
     Active Substance: OMEPRAZOLE
     Indication: ABDOMINAL PAIN
     Route: 048
     Dates: start: 20140212, end: 20140212
  17. ONDANSETRON [Concomitant]
     Active Substance: ONDANSETRON
     Route: 041
     Dates: start: 20140211, end: 20140228

REACTIONS (2)
  - Back pain [Recovered/Resolved]
  - Dizziness [Recovered/Resolved]

NARRATIVE: CASE EVENT DATE: 20140228
